FAERS Safety Report 7679457-9 (Version None)
Quarter: 2011Q3

REPORT INFORMATION
  Report Type: 
  Country: None (occurrence: None)
  Receive Date: 20110808
  Receipt Date: 20110801
  Transmission Date: 20111222
  Serious: Yes (Death, Hospitalization)
  Sender: FDA-Public Use
  Company Number: 2011SP036178

PATIENT
  Age: 60 Year
  Sex: Male

DRUGS (10)
  1. DROPERIDOL [Concomitant]
  2. ROCURONIUM BROMIDE [Suspect]
     Indication: NEUROMUSCULAR BLOCKING THERAPY
     Dosage: 45 MG, IV
     Route: 042
     Dates: start: 20110420, end: 20110420
  3. ROCURONIUM BROMIDE [Suspect]
     Indication: MUSCLE RELAXANT THERAPY
     Dosage: 45 MG, IV
     Route: 042
     Dates: start: 20110420, end: 20110420
  4. EPHEDRINE [Concomitant]
  5. BRIDION (SUGAMMADEX / 00000000/) [Suspect]
     Indication: NEUROMUSCULAR BLOCKADE REVERSAL
     Dosage: 200MG,IV
     Route: 042
     Dates: start: 20110420, end: 20110420
  6. FENTANYL [Concomitant]
  7. DIPRIVAN [Concomitant]
  8. ROPIVACAINE HYDROCHLORIDE [Concomitant]
  9. FLURBIPROFEN [Concomitant]
  10. ULTIVA [Concomitant]

REACTIONS (2)
  - HEPATIC FAILURE [None]
  - JAUNDICE [None]
